FAERS Safety Report 25030107 (Version 3)
Quarter: 2025Q1

REPORT INFORMATION
  Report Type: Spontaneous
  Country: FR (occurrence: FR)
  Receive Date: 20250303
  Receipt Date: 20250321
  Transmission Date: 20250409
  Serious: Yes (Hospitalization, Other)
  Sender: ROCHE
  Company Number: None

PATIENT
  Age: 71 Year
  Sex: Female

DRUGS (16)
  1. VALCYTE [Suspect]
     Active Substance: VALGANCICLOVIR HYDROCHLORIDE
     Indication: Renal transplant
     Dosage: 450MGX3/WEEK
     Route: 048
     Dates: start: 20241104, end: 20250116
  2. BACTRIM [Suspect]
     Active Substance: SULFAMETHOXAZOLE\TRIMETHOPRIM
     Indication: Opportunistic infection prophylaxis
     Dosage: 1DFX3/WEEK; 1 TABLET(S) MORNING (MONDAY-WEDNESDAY-FRIDAY)
     Route: 048
     Dates: start: 20241104, end: 20250117
  3. CELLCEPT [Suspect]
     Active Substance: MYCOPHENOLATE MOFETIL
     Indication: Renal transplant
     Dosage: 1GX2/D; 1 TABLET(S) AT 8AM, 1 TABLET(S) AT 8PM
     Route: 048
     Dates: start: 20241104, end: 20250116
  4. CELLCEPT [Suspect]
     Active Substance: MYCOPHENOLATE MOFETIL
     Route: 048
     Dates: start: 20250113
  5. PREDNISONE [Suspect]
     Active Substance: PREDNISONE
     Indication: Opportunistic infection prophylaxis
     Dosage: 10 MILLIGRAM(S) IN THE MORNING
     Route: 065
  6. ENVARSUS XR [Concomitant]
     Active Substance: TACROLIMUS
     Route: 065
     Dates: start: 20250113
  7. FOLIC ACID [Concomitant]
     Active Substance: FOLIC ACID
     Dosage: 1 TABLET(S) MORNING
     Route: 065
  8. LEVEMIR [Concomitant]
     Active Substance: INSULIN DETEMIR
     Dosage: 8 INTERNATIONAL UNIT(S) MORNING
     Route: 065
  9. REPAGLINIDE [Concomitant]
     Active Substance: REPAGLINIDE
     Dosage: 1 TABLET(S) MORNING, 1 TABLET(S) NOON, 1 TABLET(S) EVENING
     Route: 065
  10. BISOPROLOL [Concomitant]
     Active Substance: BISOPROLOL
     Dosage: 1 TABLET(S) MORNING FOR 30 DAY(S)
     Route: 065
  11. ELIQUIS [Concomitant]
     Active Substance: APIXABAN
     Route: 065
  12. FUROSEMIDE [Concomitant]
     Active Substance: FUROSEMIDE
     Dosage: 1 TABLET(S) NOON FOR 30 DAY(S)
     Route: 065
  13. ATORVASTATIN [Concomitant]
     Active Substance: ATORVASTATIN
     Route: 065
  14. LEVOTHYROXINE [Concomitant]
     Active Substance: LEVOTHYROXINE
     Dosage: 100MCG CPR 1 TABLET(S) MORNING
     Route: 065
  15. LEVOTHYROXINE [Concomitant]
     Active Substance: LEVOTHYROXINE
     Dosage: 25MCG OF 0.5 TABLET(S) MORNING
     Route: 065
  16. PANTOPRAZOLE [Concomitant]
     Active Substance: PANTOPRAZOLE
     Dosage: 1 TABLET IN THE EVENING
     Route: 065

REACTIONS (2)
  - Leukopenia [Recovered/Resolved]
  - Renal abscess [Unknown]

NARRATIVE: CASE EVENT DATE: 20250110
